FAERS Safety Report 8761108 (Version 3)
Quarter: 2013Q4

REPORT INFORMATION
  Report Type: Report from Study
  Country: DE (occurrence: DE)
  Receive Date: 20120830
  Receipt Date: 20131106
  Transmission Date: 20140711
  Serious: Yes (Other)
  Sender: FDA-Public Use
  Company Number: DE-009507513-1208DEU010849

PATIENT
  Sex: 0
  Weight: 82 kg

DRUGS (2)
  1. PEGINTERFERON ALFA-2B [Suspect]
     Dosage: UNK
     Dates: start: 20060919
  2. REBETOL [Suspect]
     Dosage: UNK
     Route: 048
     Dates: start: 20060919

REACTIONS (3)
  - Anaemia [Recovered/Resolved]
  - Dizziness [Recovered/Resolved]
  - Dyspnoea [Recovered/Resolved]
